FAERS Safety Report 4536558-1 (Version None)
Quarter: 2004Q4

REPORT INFORMATION
  Report Type: 
  Country: None (occurrence: None)
  Receive Date: 20041223
  Receipt Date: 20040210
  Transmission Date: 20050328
  Serious: No
  Sender: FDA-Public Use
  Company Number: US-GLAXOSMITHKLINE-A0497718A

PATIENT
  Age: 53 Year
  Sex: Female

DRUGS (3)
  1. TAGAMET [Suspect]
     Indication: ILL-DEFINED DISORDER
     Dosage: 1TAB AS REQUIRED
     Route: 048
  2. VALIUM [Concomitant]
  3. PLAQUENIL [Concomitant]

REACTIONS (2)
  - PHARMACEUTICAL PRODUCT COMPLAINT [None]
  - VOMITING [None]
